FAERS Safety Report 21315128 (Version 1)
Quarter: 2022Q3

REPORT INFORMATION
  Report Type: Spontaneous
  Country: US (occurrence: None)
  Receive Date: 20220909
  Receipt Date: 20220909
  Transmission Date: 20221026
  Serious: Yes (Death)
  Sender: FDA-Public Use
  Company Number: None

PATIENT
  Age: 8 Month
  Sex: Male

DRUGS (1)
  1. RETACRIT [Suspect]
     Active Substance: EPOETIN ALFA-EPBX
     Dosage: 15,000 UNITS OTHER   SUBCUTANEOUS
     Route: 058
     Dates: start: 202103, end: 202209

REACTIONS (1)
  - Death [None]

NARRATIVE: CASE EVENT DATE: 20220907
